FAERS Safety Report 16846977 (Version 1)
Quarter: 2019Q3

REPORT INFORMATION
  Report Type: Spontaneous
  Country: US (occurrence: US)
  Receive Date: 20190924
  Receipt Date: 20190924
  Transmission Date: 20191005
  Serious: No
  Sender: FDA-Public Use
  Company Number: US-ASSERTIO THERAPEUTICS, INC.-US-2019DEP000455

PATIENT
  Sex: Male
  Weight: 101.59 kg

DRUGS (1)
  1. GRALISE [Suspect]
     Active Substance: GABAPENTIN
     Indication: HERPES ZOSTER
     Dosage: 1800 MG, QD
     Route: 048
     Dates: start: 2018

REACTIONS (6)
  - Weight increased [Unknown]
  - Expired product administered [Unknown]
  - Adverse event [Unknown]
  - Product dose omission [Unknown]
  - Pain [Unknown]
  - Product use in unapproved indication [Unknown]

NARRATIVE: CASE EVENT DATE: 2018
